FAERS Safety Report 21147616 (Version 2)
Quarter: 2022Q3

REPORT INFORMATION
  Report Type: Spontaneous
  Country: CA (occurrence: CA)
  Receive Date: 20220729
  Receipt Date: 20220817
  Transmission Date: 20221026
  Serious: No
  Sender: FDA-Public Use
  Company Number: CA-PFIZER INC-PV202200026847

PATIENT
  Sex: Female

DRUGS (1)
  1. FRAGMIN [Suspect]
     Active Substance: DALTEPARIN SODIUM
     Dosage: 12500 IU/0.5 ML 0.5 ML SYR 5 EA IFC ENG

REACTIONS (1)
  - Needle issue [Unknown]
